FAERS Safety Report 8575553-2 (Version None)
Quarter: 2012Q3

REPORT INFORMATION
  Report Type: 
  Country: None (occurrence: None)
  Receive Date: 20120807
  Receipt Date: 20120730
  Transmission Date: 20120928
  Serious: Yes (Death, Other)
  Sender: FDA-Public Use
  Company Number: JP-SANOFI-AVENTIS-2012SA051758

PATIENT
  Age: 75 Year
  Sex: Male

DRUGS (2)
  1. DOCETAXEL [Suspect]
     Route: 042
     Dates: start: 20120601, end: 20120628
  2. DOCETAXEL [Suspect]
     Route: 042
     Dates: start: 20120629

REACTIONS (4)
  - SHOCK [None]
  - ANAEMIA [None]
  - NEUTROPHIL COUNT DECREASED [None]
  - DIARRHOEA [None]
